FAERS Safety Report 9203431 (Version 3)
Quarter: 2013Q2

REPORT INFORMATION
  Report Type: Spontaneous
  Country: JP (occurrence: JP)
  Receive Date: 20130402
  Receipt Date: 20130523
  Transmission Date: 20140414
  Serious: Yes (Death)
  Sender: FDA-Public Use
  Company Number: JP-PFIZER INC-2013104042

PATIENT
  Age: 69 Year
  Sex: Male
  Weight: 54 kg

DRUGS (17)
  1. ZOSYN [Suspect]
     Indication: PNEUMONIA
     Dosage: 2.25 G, 4X/DAY
     Route: 041
     Dates: start: 20130318, end: 20130321
  2. HANP [Concomitant]
     Indication: CARDIAC FAILURE CHRONIC
     Dosage: 3 MG/DAY
     Route: 041
     Dates: start: 20130318, end: 20130321
  3. NOVO HEPARIN [Concomitant]
     Indication: CARDIAC FAILURE CHRONIC
     Dosage: 10000 IU/DAY
     Route: 041
     Dates: start: 20130318, end: 20130326
  4. NICARPINE [Concomitant]
     Indication: HYPERTENSION
     Dosage: 20 MG/DAY
     Route: 041
     Dates: start: 20130318, end: 20130319
  5. FUROSEMIDE [Concomitant]
     Indication: CARDIAC FAILURE CHRONIC
     Dosage: 20-80MG/DAY
     Route: 042
     Dates: start: 20130318, end: 20130323
  6. BFLUID [Concomitant]
     Indication: HYPOPHAGIA
     Dosage: 1000 ML/DAY
     Route: 041
     Dates: start: 20130319, end: 20130321
  7. SAMSCA [Concomitant]
     Indication: CARDIAC FAILURE CHRONIC
     Dosage: 7.5 MG/DAY
     Route: 048
     Dates: start: 20130318, end: 20130318
  8. BAYASPIRIN [Concomitant]
     Indication: CARDIAC FAILURE CHRONIC
     Dosage: 100 MG/DAY
     Route: 048
     Dates: end: 20130319
  9. LASIX [Concomitant]
     Indication: CARDIAC FAILURE CHRONIC
     Dosage: 20 MG/DAY
     Route: 048
     Dates: end: 20130319
  10. AMARYL [Concomitant]
     Indication: DIABETES MELLITUS
     Dosage: 1 MG/DAY
     Route: 048
     Dates: end: 20130319
  11. NESINA [Concomitant]
     Indication: DIABETES MELLITUS
     Dosage: 25 MG/DAY
     Route: 048
     Dates: end: 20130319
  12. GASTER D [Concomitant]
     Dosage: 10 MG/DAY
     Route: 048
  13. LIVALO [Concomitant]
     Dosage: 1 MG/DAY
     Route: 048
  14. MAINTATE [Concomitant]
     Dosage: 2.5 MG/DAY
     Route: 048
  15. FLUITRAN [Concomitant]
     Dosage: 1 MG/DAY
     Route: 048
  16. ZYLORIC [Concomitant]
     Dosage: 200 MG/DAY
     Route: 048
  17. METGLUCO [Concomitant]
     Dosage: 1000 MG/DAY
     Route: 048

REACTIONS (1)
  - Renal failure acute [Fatal]
